FAERS Safety Report 22651513 (Version 2)
Quarter: 2023Q4

REPORT INFORMATION
  Report Type: Spontaneous
  Country: US (occurrence: US)
  Receive Date: 20230628
  Receipt Date: 20231207
  Transmission Date: 20240110
  Serious: Yes (Death, Other)
  Sender: FDA-Public Use
  Company Number: US-ABBVIE-5307336

PATIENT
  Sex: Male

DRUGS (5)
  1. KALETRA [Suspect]
     Active Substance: LOPINAVIR\RITONAVIR
     Indication: HIV infection
     Dosage: DURATION TEXT: UNKNOWN
     Route: 048
     Dates: start: 2003, end: 201102
  2. ATRIPLA [Suspect]
     Active Substance: EFAVIRENZ\EMTRICITABINE\TENOFOVIR DISOPROXIL FUMARATE
     Indication: HIV infection
     Dosage: START DATE TEXT: UNKNOWN?STOP DATE TEXT: UNKNOWN?DURATION TEXT: UNKNOWN
     Route: 048
  3. EPIVIR [Suspect]
     Active Substance: LAMIVUDINE
     Indication: HIV infection
     Dosage: DURATION TEXT: UNKNOWN
     Route: 065
     Dates: start: 2003, end: 201102
  4. TRUVADA [Suspect]
     Active Substance: EMTRICITABINE\TENOFOVIR DISOPROXIL FUMARATE
     Indication: HIV infection
     Dosage: START DATE TEXT: UNKNOWN?STOP DATE TEXT: UNKNOWN?DURATION TEXT: UNKNOWN
     Route: 065
  5. VIREAD [Suspect]
     Active Substance: TENOFOVIR DISOPROXIL FUMARATE
     Indication: HIV infection
     Dosage: DURATION TEXT: UNKNOWN
     Route: 048
     Dates: start: 2004, end: 2011

REACTIONS (2)
  - Death [Fatal]
  - Renal failure [Unknown]

NARRATIVE: CASE EVENT DATE: 20110412
